FAERS Safety Report 14180459 (Version 1)
Quarter: 2017Q4

REPORT INFORMATION
  Report Type: Spontaneous
  Country: JP (occurrence: JP)
  Receive Date: 20171110
  Receipt Date: 20171110
  Transmission Date: 20180321
  Serious: Yes (Other)
  Sender: FDA-Public Use
  Company Number: JP-DSJP-DSJ-2017-153611

PATIENT

DRUGS (5)
  1. LIXIANA TABLETS [Suspect]
     Active Substance: EDOXABAN TOSYLATE
     Indication: PRODUCT USED FOR UNKNOWN INDICATION
     Dosage: UNK
     Route: 048
  2. EPLERENONE. [Concomitant]
     Active Substance: EPLERENONE
     Dosage: UNK
     Route: 048
  3. BISOPROLOL FUMARATE. [Concomitant]
     Active Substance: BISOPROLOL FUMARATE
     Dosage: UNK
     Route: 048
  4. AZOSEMIDE [Concomitant]
     Active Substance: AZOSEMIDE
     Dosage: UNK
     Route: 048
  5. AMIODARONE                         /00133102/ [Suspect]
     Active Substance: AMIODARONE
     Dosage: UNK
     Route: 048
     Dates: start: 2013

REACTIONS (1)
  - Thyroiditis [Recovering/Resolving]
